FAERS Safety Report 13652793 (Version 1)
Quarter: 2017Q2

REPORT INFORMATION
  Report Type: Spontaneous
  Country: US (occurrence: US)
  Receive Date: 20170614
  Receipt Date: 20170614
  Transmission Date: 20170830
  Serious: No
  Sender: FDA-Public Use
  Company Number: US-ROCHE-1062192

PATIENT
  Sex: Female

DRUGS (2)
  1. XELODA [Suspect]
     Active Substance: CAPECITABINE
     Indication: PRODUCT USED FOR UNKNOWN INDICATION
     Dosage: INITIAL DOSE: 4 TABS MORNING AND 4 IN EVENING.
     Route: 065
  2. XELODA [Suspect]
     Active Substance: CAPECITABINE
     Dosage: REDUCED DOSE: 3 TABS MORNING AND 3 IN EVENING.
     Route: 065

REACTIONS (2)
  - Skin discolouration [Unknown]
  - Pain in extremity [Unknown]
